FAERS Safety Report 12179279 (Version 2)
Quarter: 2016Q1

REPORT INFORMATION
  Report Type: Spontaneous
  Country: JP (occurrence: JP)
  Receive Date: 20160314
  Receipt Date: 20160323
  Transmission Date: 20160526
  Serious: Yes (Hospitalization, Other)
  Sender: FDA-Public Use
  Company Number: JP-PFIZER INC-2016149534

PATIENT
  Age: 65 Year
  Sex: Male

DRUGS (4)
  1. EFFEXOR [Suspect]
     Active Substance: VENLAFAXINE HYDROCHLORIDE
     Dosage: 37.5 MG, DAILY
     Route: 048
     Dates: start: 20160209, end: 2016
  2. DEPROMEL [Concomitant]
     Active Substance: FLUVOXAMINE
     Dosage: 150 MG, DAILY
     Route: 048
  3. SEDIEL [Concomitant]
     Active Substance: TANDOSPIRONE
     Dosage: 80 MG, DAILY
     Route: 048
     Dates: start: 20160209
  4. BELSOMRA [Concomitant]
     Active Substance: SUVOREXANT
     Dosage: 15 MG, DAILY
     Route: 048

REACTIONS (2)
  - Suicidal ideation [Unknown]
  - Urinary retention [Recovered/Resolved]

NARRATIVE: CASE EVENT DATE: 2016
